FAERS Safety Report 9776129 (Version 3)
Quarter: 2017Q3

REPORT INFORMATION
  Report Type: Spontaneous
  Country: US (occurrence: US)
  Receive Date: 20131220
  Receipt Date: 20170712
  Transmission Date: 20171128
  Serious: Yes (Other)
  Sender: FDA-Public Use
  Company Number: US-PFIZER INC-2013364635

PATIENT
  Age: 63 Year
  Sex: Male
  Weight: 102.4 kg

DRUGS (6)
  1. LYRICA [Suspect]
     Active Substance: PREGABALIN
     Indication: SEIZURE
     Dosage: 225 MG (BY TAKING THREE CAPSULES OF 75MG TOGETHER ONCE A DAY AT NIGHT), 1X/DAY
     Route: 048
  2. LYRICA [Suspect]
     Active Substance: PREGABALIN
     Dosage: 300 MG(BY TAKING FOUR CAPSULES OF 75MG), IN A DAY
     Route: 048
  3. LYRICA [Suspect]
     Active Substance: PREGABALIN
     Dosage: 225 MG, 1X/DAY (AT NIGHT)
  4. LYRICA [Suspect]
     Active Substance: PREGABALIN
     Dosage: TWO CAPSULES OF 75MG IN THE MORNING AND THREE CAPSULES OF 75MG IN THE EVENING
     Route: 048
  5. LYRICA [Suspect]
     Active Substance: PREGABALIN
     Dosage: 150 MG, 1X/DAY (IN THE MORNING)
  6. PHENOBARBITAL. [Concomitant]
     Active Substance: PHENOBARBITAL
     Indication: SEIZURE
     Dosage: UNK

REACTIONS (2)
  - Seizure [Recovered/Resolved]
  - Condition aggravated [Recovered/Resolved]
